FAERS Safety Report 6928571-1 (Version None)
Quarter: 2010Q3

REPORT INFORMATION
  Report Type: 
  Country: None (occurrence: None)
  Receive Date: 20100809
  Receipt Date: 20091001
  Transmission Date: 20110219
  Serious: No
  Sender: FDA-Public Use
  Company Number: US-000965

PATIENT
  Age: 78 Year
  Sex: Male

DRUGS (7)
  1. DEGARELIX (240 MG, 80 MG, 80 MG) [Suspect]
     Indication: PROSTATE CANCER
     Dosage: (240 MG 1X/MONTH), (80 MG 1X/MONTH), (80 MG 1X/MONTH SUBCUTANEOUS)
     Route: 058
     Dates: start: 20090727, end: 20090727
  2. DEGARELIX (240 MG, 80 MG, 80 MG) [Suspect]
     Indication: PROSTATE CANCER
     Dosage: (240 MG 1X/MONTH), (80 MG 1X/MONTH), (80 MG 1X/MONTH SUBCUTANEOUS)
     Route: 058
     Dates: start: 20090827
  3. DEGARELIX (240 MG, 80 MG, 80 MG) [Suspect]
     Indication: PROSTATE CANCER
     Dosage: (240 MG 1X/MONTH), (80 MG 1X/MONTH), (80 MG 1X/MONTH SUBCUTANEOUS)
     Route: 058
     Dates: start: 20090922
  4. DAILY MULTIVITAMIN [Concomitant]
  5. CITRACAL [Concomitant]
  6. GLUCOSAMINE [Concomitant]
  7. CIALIS [Concomitant]

REACTIONS (1)
  - INJECTION SITE HYPERSENSITIVITY [None]
